FAERS Safety Report 13665054 (Version 2)
Quarter: 2017Q2

REPORT INFORMATION
  Report Type: Spontaneous
  Country: TR (occurrence: TR)
  Receive Date: 20170619
  Receipt Date: 20170623
  Transmission Date: 20170830
  Serious: Yes (Other)
  Sender: FDA-Public Use
  Company Number: TR-BAYER-2017-111831

PATIENT
  Age: 29 Year
  Sex: Female

DRUGS (2)
  1. QLAIRISTA [Suspect]
     Active Substance: DIENOGEST\ESTRADIOL VALERATE
     Indication: CONTRACEPTION
     Dosage: UNK
     Route: 048
  2. AKSEF [Concomitant]
     Active Substance: CEFUROXIME
     Dosage: UNK
     Dates: start: 2017, end: 2017

REACTIONS (3)
  - Metrorrhagia [Recovered/Resolved]
  - Psychological trauma [None]
  - Abnormal withdrawal bleeding [Recovered/Resolved]

NARRATIVE: CASE EVENT DATE: 2017
